FAERS Safety Report 8167845 (Version 3)
Quarter: 2014Q2

REPORT INFORMATION
  Report Type: Spontaneous
  Country: US (occurrence: US)
  Receive Date: 20111004
  Receipt Date: 20140501
  Transmission Date: 20141212
  Serious: Yes (Hospitalization)
  Sender: FDA-Public Use
  Company Number: US-BAYER-2011-091967

PATIENT
  Age: 31 Year
  Sex: Female
  Weight: 71.66 kg

DRUGS (3)
  1. YASMIN [Suspect]
     Dosage: UNK
     Route: 048
     Dates: start: 200402, end: 200408
  2. YASMIN [Suspect]
     Route: 048
  3. NEXIUM [Concomitant]

REACTIONS (2)
  - Cholecystitis chronic [Unknown]
  - Cholecystectomy [None]
